FAERS Safety Report 16320270 (Version 3)
Quarter: 2019Q3

REPORT INFORMATION
  Report Type: Spontaneous
  Country: US (occurrence: US)
  Receive Date: 20190516
  Receipt Date: 20190823
  Transmission Date: 20191004
  Serious: No
  Sender: FDA-Public Use
  Company Number: US-PFIZER INC-2019208499

PATIENT
  Age: 65 Year
  Sex: Female
  Weight: 127 kg

DRUGS (1)
  1. GABAPENTIN. [Suspect]
     Active Substance: GABAPENTIN
     Dosage: 1800 MG, DAILY
     Route: 048
     Dates: start: 20170627, end: 20180327

REACTIONS (2)
  - Somnolence [Unknown]
  - Drug ineffective [Unknown]
